FAERS Safety Report 5274687-8 (Version None)
Quarter: 2007Q1

REPORT INFORMATION
  Report Type: 
  Country: None (occurrence: None)
  Receive Date: 20070320
  Receipt Date: 20070309
  Transmission Date: 20070707
  Serious: Yes (Hospitalization)
  Sender: FDA-Public Use
  Company Number: 2006BI018098

PATIENT
  Age: 40 Year
  Sex: Male

DRUGS (6)
  1. AVONEX [Suspect]
     Indication: DRUG USE FOR UNKNOWN INDICATION
     Dosage: 30 UG; QW; IM
     Route: 030
     Dates: start: 20000811, end: 20030101
  2. AVONEX [Suspect]
     Indication: MULTIPLE SCLEROSIS
     Dosage: 30 UG; QW; IM
     Route: 030
     Dates: start: 20030101
  3. BACLOFEN [Concomitant]
  4. OXYBUTYNIN CHLORIDE [Concomitant]
  5. MULTI-VITAMIN [Concomitant]
  6. VITAMIN B COMPLEX CAP [Concomitant]

REACTIONS (2)
  - CONDITION AGGRAVATED [None]
  - MULTIPLE SCLEROSIS [None]
